FAERS Safety Report 15284522 (Version 2)
Quarter: 2018Q3

REPORT INFORMATION
  Report Type: Spontaneous
  Country: BR (occurrence: BR)
  Receive Date: 20180816
  Receipt Date: 20180822
  Transmission Date: 20181010
  Serious: No
  Sender: FDA-Public Use
  Company Number: BR-PFIZER INC-2018329187

PATIENT
  Age: 23 Year
  Sex: Male

DRUGS (4)
  1. DORFLEX [Concomitant]
     Active Substance: CAFFEINE\DIPYRONE\ORPHENADRINE
     Indication: PAIN
     Dosage: UNK, AS NEEDED (HE USES ONLY WHEN HE HAS PAIN)
     Dates: start: 201806
  2. TRAMAL [Concomitant]
     Active Substance: TRAMADOL
     Indication: PAIN
     Dosage: UNK, AS NEEDED (HE USES ONLY WHEN HE HAS PAIN)
  3. LYRICA [Suspect]
     Active Substance: PREGABALIN
     Indication: FIBROMYALGIA
     Dosage: 75 MG, 1X/DAY (1 TABLET OF 75 MG AT NIGHT)
     Dates: start: 201807
  4. ADVIL [Concomitant]
     Active Substance: IBUPROFEN
     Indication: PAIN
     Dosage: 2 DF, AS NEEDED (1 CAPSULE IN THE MORNING AND 1 IN THE AFTERNOON, HE USES ONLY WHEN HE HAS PAIN)
     Dates: start: 201807

REACTIONS (3)
  - Inflammation [Recovered/Resolved]
  - Discomfort [Recovered/Resolved]
  - Pain [Recovered/Resolved]

NARRATIVE: CASE EVENT DATE: 201807
